FAERS Safety Report 11886716 (Version 1)
Quarter: 2016Q1

REPORT INFORMATION
  Report Type: Spontaneous
  Country: BR (occurrence: BR)
  Receive Date: 20160104
  Receipt Date: 20160104
  Transmission Date: 20160526
  Serious: Yes (Death, Hospitalization, Other)
  Sender: FDA-Public Use
  Company Number: BR-ELI_LILLY_AND_COMPANY-BR201512008856

PATIENT
  Sex: Female
  Weight: 64 kg

DRUGS (8)
  1. GEMZAR [Suspect]
     Active Substance: GEMCITABINE HYDROCHLORIDE
     Indication: BREAST CANCER FEMALE
     Dosage: 1012.2 MG, CYCLICAL
     Route: 042
     Dates: start: 20151105
  2. PROSURE                            /00801201/ [Concomitant]
     Dosage: UNK UNK, BID
     Route: 065
  3. DIGESAN                            /00576701/ [Concomitant]
     Dosage: 10 MG, EVERY 8 HRS FOR 4 DAYS
     Route: 065
  4. OXYCONTIN [Concomitant]
     Active Substance: OXYCODONE HYDROCHLORIDE
     Dosage: UNK, OTHER EVERY 12H
     Route: 065
  5. NAUSEDRON [Concomitant]
     Active Substance: ONDANSETRON HYDROCHLORIDE
     Dosage: 8 MG, EVERY 8 HRS FOR 3 DAYS
     Route: 065
  6. FAULDCISPLA [Concomitant]
     Active Substance: CISPLATIN
     Indication: BREAST CANCER FEMALE
     Dosage: 40.48 MG, CYCLICAL
     Route: 042
     Dates: start: 20151105
  7. GLIFAGE [Concomitant]
     Active Substance: METFORMIN HYDROCHLORIDE
     Dosage: 500 MG, QD
     Route: 065
  8. OMEPRAZOL                          /00661201/ [Concomitant]
     Active Substance: OMEPRAZOLE
     Dosage: 20 MG, UNK
     Route: 065

REACTIONS (7)
  - Blood bilirubin increased [Unknown]
  - General physical health deterioration [Unknown]
  - Pyrexia [Unknown]
  - Death [Fatal]
  - Hepatic failure [Unknown]
  - Neutropenia [Unknown]
  - Ascites [Unknown]
